FAERS Safety Report 15317555 (Version 3)
Quarter: 2018Q3

REPORT INFORMATION
  Report Type: Spontaneous
  Country: FR (occurrence: FR)
  Receive Date: 20180824
  Receipt Date: 20180824
  Transmission Date: 20181010
  Serious: Yes (Other)
  Sender: FDA-Public Use
  Company Number: PHHY2018FR081351

PATIENT
  Age: 52 Year
  Sex: Female

DRUGS (4)
  1. DICLOFENAC SANDOZ [Suspect]
     Active Substance: DICLOFENAC SODIUM
     Dosage: 3 DF, QD
     Route: 048
     Dates: start: 20180611
  2. DICLOFENAC SANDOZ [Suspect]
     Active Substance: DICLOFENAC SODIUM
     Indication: RHEUMATOID ARTHRITIS
     Dosage: 3 DF, QD
     Route: 048
     Dates: start: 201506
  3. STRESAM [Suspect]
     Active Substance: ETIFOXINE
     Indication: ANXIETY
     Dosage: 150 MG, QD
     Route: 048
     Dates: start: 20180329
  4. STRESAM [Suspect]
     Active Substance: ETIFOXINE
     Dosage: 150 MG, QD
     Route: 048
     Dates: start: 20180611

REACTIONS (1)
  - Hepatic enzyme increased [Recovered/Resolved]

NARRATIVE: CASE EVENT DATE: 20180611
